FAERS Safety Report 20691760 (Version 1)
Quarter: 2022Q2

REPORT INFORMATION
  Report Type: Spontaneous
  Country: US (occurrence: None)
  Receive Date: 20220407
  Receipt Date: 20220407
  Transmission Date: 20220721
  Serious: No
  Sender: FDA-Public Use
  Company Number: None

PATIENT
  Age: 66 Year
  Sex: Male

DRUGS (1)
  1. PIPERACILLIN SODIUM\TAZOBACTAM SODIUM [Suspect]
     Active Substance: PIPERACILLIN SODIUM\TAZOBACTAM SODIUM
     Indication: Sepsis
     Dosage: OTHER STRENGTH : 3/0.375/50 G/ML;?FREQUENCY : ONCE;?
     Route: 042
     Dates: start: 20220107, end: 20220107

REACTIONS (4)
  - Cough [None]
  - Wheezing [None]
  - Erythema multiforme [None]
  - Dyspnoea [None]

NARRATIVE: CASE EVENT DATE: 20220107
